FAERS Safety Report 8261525-4 (Version None)
Quarter: 2012Q2

REPORT INFORMATION
  Report Type: 
  Country: None (occurrence: None)
  Receive Date: 20120402
  Receipt Date: 20120319
  Transmission Date: 20120825
  Serious: Yes (Death)
  Sender: FDA-Public Use
  Company Number: UTC-016420

PATIENT
  Age: 61 Year
  Sex: Female
  Weight: 82.7 kg

DRUGS (2)
  1. ADCIRCA [Concomitant]
  2. REMODULIN [Suspect]
     Dosage: 232.56 UG/KG (0.165 UG/KG, 1 IN 1 MIN), SUBCUTANEOUS
     Route: 058
     Dates: start: 20060609

REACTIONS (1)
  - SYSTEMIC LUPUS ERYTHEMATOSUS [None]
